FAERS Safety Report 9398429 (Version 3)
Quarter: 2013Q4

REPORT INFORMATION
  Report Type: Spontaneous
  Country: GB (occurrence: IE)
  Receive Date: 20130712
  Receipt Date: 20131108
  Transmission Date: 20140711
  Serious: Yes (Other)
  Sender: FDA-Public Use
  Company Number: IE-009507513-1307IRL004334

PATIENT
  Age: 36 Year
  Sex: Female

DRUGS (2)
  1. IMPLANON [Suspect]
     Dosage: UNK
     Route: 059
     Dates: start: 20091216, end: 2013
  2. NORETHINDRONE [Concomitant]

REACTIONS (5)
  - Thymectomy [Unknown]
  - Pain [Unknown]
  - Menorrhagia [Unknown]
  - Medical device complication [Unknown]
  - Incorrect drug administration duration [Unknown]
